FAERS Safety Report 7903450-1 (Version None)
Quarter: 2011Q4

REPORT INFORMATION
  Report Type: 
  Country: None (occurrence: None)
  Receive Date: 20111109
  Receipt Date: 20111103
  Transmission Date: 20120403
  Serious: Yes (Death)
  Sender: FDA-Public Use
  Company Number: US-GILEAD-2011-0042741

PATIENT
  Sex: Male

DRUGS (19)
  1. NITROGLYCERIN [Concomitant]
  2. PULMICORT FLEXHALER [Concomitant]
  3. METRONIDAZOLE [Concomitant]
  4. ADVAIR DISKUS 100/50 [Concomitant]
  5. LIPITOR [Concomitant]
  6. REVATIO [Concomitant]
  7. PREDNISONE [Concomitant]
  8. ATROVENT [Concomitant]
  9. DIGOXIN [Concomitant]
  10. WARFARIN SODIUM [Concomitant]
  11. POTASSIUM CHLORIDE [Concomitant]
  12. DIFLUCAN [Concomitant]
  13. OMEPRAZOLE [Concomitant]
  14. LETAIRIS [Suspect]
     Indication: PULMONARY HYPERTENSION
     Dosage: 10 MG, UNK
     Route: 048
     Dates: start: 20080206
  15. LEVOTHYROXINE SODIUM [Concomitant]
  16. CARVEDILOL [Concomitant]
  17. TORSEMIDE [Concomitant]
  18. AZATHIOPRINE [Concomitant]
  19. DEMEDEX [Concomitant]

REACTIONS (1)
  - CARDIAC FAILURE [None]
